FAERS Safety Report 9858951 (Version 1)
Quarter: 2014Q1

REPORT INFORMATION
  Report Type: Spontaneous
  Country: US (occurrence: None)
  Receive Date: 20140129
  Receipt Date: 20140129
  Transmission Date: 20141002
  Serious: No
  Sender: FDA-Public Use
  Company Number: SYM-2014-15281

PATIENT
  Age: 7 Year
  Sex: Female

DRUGS (1)
  1. XENAZINE (12.5 MILLIGRAM, TABLET) (TETRABENAZINE, TETRABENAZINE) [Suspect]
     Indication: CHOREA
     Route: 048
     Dates: start: 20131016

REACTIONS (1)
  - Convulsion [None]
